FAERS Safety Report 4781309-9 (Version None)
Quarter: 2005Q3

REPORT INFORMATION
  Report Type: 
  Country: None (occurrence: None)
  Receive Date: 20050914
  Receipt Date: 20050414
  Transmission Date: 20060218
  Serious: Yes (Hospitalization)
  Sender: FDA-Public Use
  Company Number: 163-20785-05040329

PATIENT
  Age: 66 Year
  Sex: Male
  Weight: 94.9 kg

DRUGS (9)
  1. THALOMID [Suspect]
     Indication: PROSTATE CANCER
     Dosage: 200 MG, DAILY, ORAL
     Route: 048
     Dates: start: 20050304, end: 20050301
  2. THALOMID [Suspect]
     Indication: PROSTATE CANCER
     Dosage: 200 MG, DAILY, ORAL
     Route: 048
     Dates: start: 20050325, end: 20050326
  3. ASPIRIN [Concomitant]
  4. ATENOLOL [Concomitant]
  5. DETROL [Concomitant]
  6. GEMFIBROZIL [Concomitant]
  7. ALUMINUM HYDROXIDE AND MAGNESIUM TRISILICATE [Concomitant]
  8. RANITIDINE [Concomitant]
  9. TRIAM (DYAZIDE) [Concomitant]

REACTIONS (2)
  - CHEST PAIN [None]
  - VENTRICULAR ARRHYTHMIA [None]
